FAERS Safety Report 9066698 (Version 1)
Quarter: 2013Q1

REPORT INFORMATION
  Report Type: Report from Study
  Country: US (occurrence: US)
  Receive Date: 20130131
  Receipt Date: 20130131
  Transmission Date: 20140127
  Serious: No
  Sender: FDA-Public Use
  Company Number: US-ABBOTT-12P-163-1016098-00

PATIENT
  Age: 60 Year
  Sex: Female

DRUGS (3)
  1. HUMIRA [Suspect]
     Indication: RHEUMATOID ARTHRITIS
     Dates: start: 201210
  2. PROZAC [Concomitant]
  3. XENICAL [Concomitant]

REACTIONS (4)
  - Device malfunction [Unknown]
  - Rheumatoid arthritis [Unknown]
  - Arthralgia [Not Recovered/Not Resolved]
  - Drug dose omission [Not Recovered/Not Resolved]
